FAERS Safety Report 10450896 (Version 2)
Quarter: 2014Q3

REPORT INFORMATION
  Report Type: Report from Study
  Country: BR (occurrence: BR)
  Receive Date: 20140912
  Receipt Date: 20140915
  Transmission Date: 20150326
  Serious: Yes (Death, Other)
  Sender: FDA-Public Use
  Company Number: PHHY2014BR118320

PATIENT
  Sex: Female
  Weight: 54 kg

DRUGS (8)
  1. CAPTOPRIL. [Concomitant]
     Active Substance: CAPTOPRIL
     Indication: HYPERTENSION
     Dosage: 1 DF, DAILY
     Dates: start: 2013, end: 2014
  2. NIFEDIPINE. [Concomitant]
     Active Substance: NIFEDIPINE
     Indication: OSTEOPOROSIS
     Route: 048
  3. ACLASTA [Suspect]
     Active Substance: ZOLEDRONIC ACID
     Indication: OSTEOPOROSIS
     Dosage: UNK, ONCE A YEAR
     Route: 042
     Dates: start: 201309, end: 201309
  4. MESIGYNA [Concomitant]
     Indication: HYPERTENSION
     Dosage: 1 DF, DAILY
     Dates: start: 2013, end: 2014
  5. CALCIUM [Concomitant]
     Active Substance: CALCIUM
     Indication: OSTEOPOROSIS
     Dosage: 1 DF, DAILY
     Dates: start: 2013, end: 2014
  6. VITAMIN D [Concomitant]
     Active Substance: CHOLECALCIFEROL
     Indication: OSTEOPOROSIS
  7. CELEBRATE [Concomitant]
     Indication: NERVOUS SYSTEM DISORDER
     Dosage: 1 DF, DAILY
     Dates: start: 2013, end: 2014
  8. CEBRALAT [Concomitant]
     Active Substance: CILOSTAZOL
     Route: 048

REACTIONS (3)
  - Cerebrovascular accident [Fatal]
  - Dyspnoea [Fatal]
  - Pneumonia [Fatal]
